FAERS Safety Report 11151074 (Version 3)
Quarter: 2015Q3

REPORT INFORMATION
  Report Type: Spontaneous
  Country: US (occurrence: None)
  Receive Date: 20150528
  Receipt Date: 20150902
  Transmission Date: 20151125
  Serious: Yes (Hospitalization, Other)
  Sender: FDA-Public Use
  Company Number: US-2015VAL000349

PATIENT
  Age: 60 Year
  Sex: Female

DRUGS (30)
  1. TRAMADOL (TRAMADOL) [Suspect]
     Active Substance: TRAMADOL
     Indication: PRODUCT USED FOR UNKNOWN INDICATION
     Dosage: 33.33 ML/HR, Q12HR (100 ML)
  2. POTASSIUM CHLORIDE (POTASSIUM CHLORIDE) [Suspect]
     Active Substance: POTASSIUM CHLORIDE
     Indication: HYPOKALAEMIA
     Dosage: 20 TO 40 MEQ PER PARAMETER, PRN, ORAL
     Route: 048
  3. BUPIVACAIN (BUPIVACAINE HYDROCHLORIDE) 2.5 MG/ML [Suspect]
     Active Substance: BUPIVACAINE
     Indication: MUSCLE SPASTICITY
     Route: 037
     Dates: start: 2008
  4. ARTIFICIAL TEARS /00445101/ (HYPROMELLOSE) [Suspect]
     Active Substance: HYPROMELLOSES
     Indication: DRY EYE
     Dosage: 154 DROPS, (Q2H) PRN; BOTH EYES, OPHTHALMIC
     Route: 047
  5. MORPHINE (MORPHINE) [Suspect]
     Active Substance: MORPHINE
     Indication: PAIN
     Dosage: 2 TO 4 MG, IV PUSH, Q1HR, AS NEEDED, INTRAVENOUS
     Route: 042
  6. COUMADIN [Suspect]
     Active Substance: WARFARIN SODIUM
     Indication: PRODUCT USED FOR UNKNOWN INDICATION
  7. CLONIDINE (CLONIDINE) TABLET, 0.1MG [Suspect]
     Active Substance: CLONIDINE
     Indication: HYPERTENSION
     Dosage: 0.1 MG, PRN (Q6H), ORAL
     Route: 048
  8. HEPARIN SODIUM (HEPARIN SODIUM) [Suspect]
     Active Substance: HEPARIN SODIUM
     Indication: PRODUCT USED FOR UNKNOWN INDICATION
  9. BUPROPION (BUPROPION) TABLET [Suspect]
     Active Substance: BUPROPION
     Indication: PRODUCT USED FOR UNKNOWN INDICATION
  10. ALBUTEROL /00139501/ (SALBUTAMOL) INHALATION SOLUTION [Suspect]
     Active Substance: ALBUTEROL
     Indication: WHEEZING
     Dosage: 0.083%, PRN, NEB INHALATION, Q4HR, RESPIRATORY
     Route: 055
  11. OXYCODONE (OXYCODONE) [Suspect]
     Active Substance: OXYCODONE
     Indication: PAIN
     Dosage: 5 MG, PRN (FEED TUBE, Q4HR), ORAL
     Route: 048
  12. METOPROLOL TARTRATE. [Suspect]
     Active Substance: METOPROLOL TARTRATE
     Indication: PRODUCT USED FOR UNKNOWN INDICATION
     Route: 048
  13. CEFEPIME [Suspect]
     Active Substance: CEFEPIME HYDROCHLORIDE
     Indication: PRODUCT USED FOR UNKNOWN INDICATION
     Dosage: 33.33 ML/HR, Q12HR (100 ML), INTRAVENOUS
     Route: 042
  14. BACLOFEN (BACLOFEN) [Suspect]
     Active Substance: BACLOFEN
     Indication: MUSCLE SPASTICITY
     Dosage: 114.91 UG, QD, AMPOULE, INTRATHECAL
     Route: 037
     Dates: start: 2008
  15. ACETAMINOPHEN (PARACETAMOL) [Suspect]
     Active Substance: ACETAMINOPHEN
     Indication: PYREXIA
     Dosage: 650 MG (160MG/5ML)  20.3, FEED TUBE, Q4H
  16. LABETALOL [Suspect]
     Active Substance: LABETALOL\LABETALOL HYDROCHLORIDE
     Indication: HYPERTENSION
     Dosage: 5 MG/ML (5 MG, IV, Q15MIN)
     Route: 042
  17. POLYETHYLENE GLYCOL 3350 (MACROGOL 3350) [Suspect]
     Active Substance: POLYETHYLENE GLYCOL 3350
     Indication: CONSTIPATION
     Dosage: 17 G, PRN, DAILY, ORAL
     Route: 048
  18. LIPITOR [Suspect]
     Active Substance: ATORVASTATIN CALCIUM
     Indication: PRODUCT USED FOR UNKNOWN INDICATION
  19. SODIUM CHLORIDE (SODIUM CHLORIDE) [Suspect]
     Active Substance: SODIUM CHLORIDE
     Indication: NASAL CONGESTION
     Dosage: 0.65 PERCENT, NASAL 45 AT DOSE OF 1 SPRAY, Q4HR, PRN, NASAL
     Route: 045
  20. ONDANSETRON (ONDANSETRON) SOLUTION FOR INJECTION, 2 MG/ML [Suspect]
     Active Substance: ONDANSETRON
     Indication: NAUSEA
     Dosage: 4 MG, IV PUSH, Q4HR, PRN (2 ML, INJECTION), INTRAVENOUS
     Route: 042
  21. ASPIRIN. [Suspect]
     Active Substance: ASPIRIN
     Indication: PRODUCT USED FOR UNKNOWN INDICATION
  22. BISACODYL (BISACODYL) SUPPOSITORY [Suspect]
     Active Substance: BISACODYL
     Indication: CONSTIPATION
     Dosage: 1 DF, QD PRN, RECTAL
     Route: 054
  23. ONDANSETRON (ONDANSETRON) SOLUTION FOR INJECTION, 2 MG/ML [Suspect]
     Active Substance: ONDANSETRON
     Indication: VOMITING
     Dosage: 4 MG, IV PUSH, Q4HR, PRN (2 ML, INJECTION), INTRAVENOUS
     Route: 042
  24. HYDRALAZINE (HYDRALAZINE) INJECTION, 20 MG/ML [Suspect]
     Active Substance: HYDRALAZINE HYDROCHLORIDE
     Indication: HYPERTENSION
     Dosage: 10 MG (1 ML INJECTION), Q30MIN, PRN, INTRAVENOUS
     Route: 042
  25. LACTULOSE (LACTULOSE) SYRUP [Suspect]
     Active Substance: LACTULOSE
     Indication: CONSTIPATION
     Dosage: 20 G (10 G/15 ML) (30 ML), PRN
  26. DOCUSATE (DOCUSATE) TABLET, 50/8.6MG [Suspect]
     Active Substance: DOCUSATE
     Indication: PRODUCT USED FOR UNKNOWN INDICATION
     Route: 048
  27. ALBUTEROL /00139501/ (SALBUTAMOL) INHALATION SOLUTION [Suspect]
     Active Substance: ALBUTEROL
     Indication: DYSPNOEA
     Dosage: 0.083%, PRN, NEB INHALATION, Q4HR, RESPIRATORY
     Route: 055
  28. SERTRALINE [Suspect]
     Active Substance: SERTRALINE HYDROCHLORIDE
     Indication: PRODUCT USED FOR UNKNOWN INDICATION
  29. FAMOTIDINE (FAMOTIDINE) INJECTION, 10 MG/ML [Suspect]
     Active Substance: FAMOTIDINE
     Indication: PRODUCT USED FOR UNKNOWN INDICATION
     Dosage: 20 MG (2 ML INJECTION), BID, IV PUSH, INTRAVENOUS
     Route: 042
  30. NALOXONE (NALOXONE) 0.4 MG/ML [Suspect]
     Active Substance: NALOXONE
     Indication: RESPIRATORY DEPRESSION
     Dosage: 0.2 MG (1 ML INJECTION), IV PUSH, Q2MIN, INTRAVENOUS
     Route: 042

REACTIONS (15)
  - Blood glucose increased [None]
  - Haemoglobin decreased [None]
  - Confusional state [None]
  - Mental status changes [None]
  - Fatigue [None]
  - Device computer issue [None]
  - Aspartate aminotransferase increased [None]
  - Blood potassium decreased [None]
  - Device infusion issue [None]
  - Incorrect drug administration rate [None]
  - Haematocrit decreased [None]
  - Sedation [None]
  - Overdose [None]
  - Unresponsive to stimuli [None]
  - Loss of consciousness [None]

NARRATIVE: CASE EVENT DATE: 20150501
